FAERS Safety Report 10465066 (Version 6)
Quarter: 2019Q1

REPORT INFORMATION
  Report Type: Spontaneous
  Country: BR (occurrence: BR)
  Receive Date: 20140919
  Receipt Date: 20190315
  Transmission Date: 20190417
  Serious: Yes (Death, Other)
  Sender: FDA-Public Use
  Company Number: BR-PFIZER INC-2014255638

PATIENT
  Age: 83 Year
  Sex: Male
  Weight: 61 kg

DRUGS (11)
  1. LYRICA [Suspect]
     Active Substance: PREGABALIN
     Indication: OSTEOARTHRITIS
     Dosage: 75 MG, 2X/DAY
     Route: 048
     Dates: start: 2007
  2. TAMSULOSIN [Concomitant]
     Active Substance: TAMSULOSIN
     Indication: PROSTATIC DISORDER
     Dosage: 1 DF, 2X/DAY
  3. CAPILAREMA [Concomitant]
     Indication: VARICOSE VEIN
     Dosage: 1 DF, DAILY
  4. RIVOTRIL [Concomitant]
     Active Substance: CLONAZEPAM
     Indication: SLEEP DISORDER
     Dosage: 1 DF, DAILY
     Dates: start: 2011
  5. VENLAXIN [Concomitant]
     Active Substance: VENLAFAXINE HYDROCHLORIDE
     Indication: OSTEOARTHRITIS
     Dosage: 1 DF, DAILY
     Dates: start: 2011
  6. VENALOT [COUMARIN;TROXERUTIN] [Concomitant]
     Indication: VARICOSE VEIN
     Dosage: UNK
  7. CALCIUM [Concomitant]
     Active Substance: CALCIUM
     Indication: CALCIUM DEFICIENCY
     Dosage: 1 DF, DAILY
  8. ETNA [Concomitant]
     Active Substance: UNSPECIFIED INGREDIENT
     Indication: VARICOSE VEIN
     Dosage: UNK
     Dates: start: 2013
  9. VASOGARD [Concomitant]
     Active Substance: CILOSTAZOL
     Indication: VARICOSE VEIN
     Dosage: UNK
     Dates: start: 2013
  10. LYRICA [Suspect]
     Active Substance: PREGABALIN
     Indication: PAIN IN EXTREMITY
     Dosage: 75 MG, 2X/DAY (EVERY 12 HOURS)
     Route: 048
     Dates: start: 20150626, end: 2015
  11. LYRICA [Suspect]
     Active Substance: PREGABALIN
     Dosage: 75 MG, 2X/DAY (1 IN THE MORNING AND 1 AT NIGHT)

REACTIONS (5)
  - Cataract [Recovered/Resolved]
  - Neoplasm malignant [Unknown]
  - Death [Fatal]
  - Gastrointestinal disorder [Unknown]
  - Formication [Recovered/Resolved]

NARRATIVE: CASE EVENT DATE: 2010
